FAERS Safety Report 10774563 (Version 2)
Quarter: 2015Q1

REPORT INFORMATION
  Report Type: Report from Study
  Country: DE (occurrence: DE)
  Receive Date: 20150209
  Receipt Date: 20150218
  Transmission Date: 20150721
  Serious: Yes (Life-Threatening, Hospitalization, Other)
  Sender: FDA-Public Use
  Company Number: DE-AMGEN-DEUNI2015010616

PATIENT
  Age: 80 Year
  Sex: Female

DRUGS (15)
  1. L-THYROXIN [Concomitant]
     Active Substance: LEVOTHYROXINE SODIUM
     Dosage: UNK
  2. TORASEMIDE [Concomitant]
     Active Substance: TORSEMIDE
     Dosage: UNK
  3. ETANERCEPT [Suspect]
     Active Substance: ETANERCEPT
     Indication: PRODUCT USED FOR UNKNOWN INDICATION
     Dosage: 50 MG, QWK, EVERY 7 DAYS
     Route: 065
     Dates: start: 20090617, end: 20140911
  4. BISOPROLOL [Concomitant]
     Active Substance: BISOPROLOL
     Indication: HYPERTENSION
     Dosage: UNK
  5. PARACETAMOL [Concomitant]
     Active Substance: ACETAMINOPHEN
     Dosage: UNK
  6. PREDNISOLONE. [Concomitant]
     Active Substance: PREDNISOLONE
     Dosage: UNK
  7. RAMIPRIL. [Concomitant]
     Active Substance: RAMIPRIL
     Dosage: UNK
  8. METHOTREXATE SODIUM. [Suspect]
     Active Substance: METHOTREXATE SODIUM
     Indication: PRODUCT USED FOR UNKNOWN INDICATION
     Dosage: 10 MG, WEEKLY
     Route: 065
     Dates: end: 201409
  9. CARMEN                             /00740901/ [Concomitant]
     Indication: HYPERTENSION
     Dosage: UNK
  10. NOVALGIN [Concomitant]
     Active Substance: METAMIZOLE SODIUM
     Dosage: UNK
  11. NEXIUM [Concomitant]
     Active Substance: ESOMEPRAZOLE MAGNESIUM
     Dosage: UNK
  12. AMLODIPINE [Concomitant]
     Active Substance: AMLODIPINE BESYLATE
     Dosage: UNK
  13. GABAPENTIN. [Concomitant]
     Active Substance: GABAPENTIN
     Dosage: UNK
  14. SIMVASTATIN. [Concomitant]
     Active Substance: SIMVASTATIN
     Dosage: UNK
  15. CLEXANE [Concomitant]
     Active Substance: ENOXAPARIN SODIUM
     Dosage: UNK

REACTIONS (6)
  - Sepsis [Recovered/Resolved with Sequelae]
  - Wound infection [Recovered/Resolved with Sequelae]
  - Cerebral infarction [Not Recovered/Not Resolved]
  - Ankle fracture [Recovered/Resolved with Sequelae]
  - Pancytopenia [Recovered/Resolved]
  - Leg amputation [Recovered/Resolved]

NARRATIVE: CASE EVENT DATE: 20140911
